FAERS Safety Report 9253959 (Version 1)
Quarter: 2013Q1

REPORT INFORMATION
  Report Type: Spontaneous
  Country: US (occurrence: None)
  Receive Date: 20121203
  Receipt Date: 20121203
  Transmission Date: 20140127
  Serious: Yes (Hospitalization, Other)
  Sender: FDA-Public Use
  Company Number: 2011SP056413

PATIENT
  Age: 21 Year
  Sex: Female
  Weight: 61.24 kg

DRUGS (1)
  1. NUVARING [Suspect]
     Indication: CONTRACEPTION
     Dates: start: 200902, end: 201007

REACTIONS (6)
  - Pulmonary embolism [None]
  - Deep vein thrombosis [None]
  - Metaplasia [None]
  - Limb discomfort [None]
  - Breast fibrosis [None]
  - Breast enlargement [None]
